FAERS Safety Report 25429499 (Version 1)
Quarter: 2025Q2

REPORT INFORMATION
  Report Type: Spontaneous
  Country: FR (occurrence: FR)
  Receive Date: 20250612
  Receipt Date: 20250612
  Transmission Date: 20250716
  Serious: Yes (Hospitalization, Other)
  Sender: RECKITT BENCKISER
  Company Number: None

PATIENT

DRUGS (2)
  1. SUBUTEX [Suspect]
     Active Substance: BUPRENORPHINE HYDROCHLORIDE
     Indication: Product used for unknown indication
     Route: 065
  2. DIAZEPAM [Suspect]
     Active Substance: DIAZEPAM
     Indication: Product used for unknown indication
     Route: 048

REACTIONS (5)
  - Acute kidney injury [Recovered/Resolved with Sequelae]
  - Altered state of consciousness [Recovered/Resolved]
  - Drug dependence [Unknown]
  - Intentional product misuse [Unknown]
  - Respiratory distress [Recovering/Resolving]

NARRATIVE: CASE EVENT DATE: 19800101
